FAERS Safety Report 5816936-0 (Version None)
Quarter: 2008Q3

REPORT INFORMATION
  Report Type: 
  Country: None (occurrence: None)
  Receive Date: 20080722
  Receipt Date: 20080709
  Transmission Date: 20090109
  Serious: Yes (Other)
  Sender: FDA-Public Use
  Company Number: PHBS2003JP14192

PATIENT
  Age: 40 Year
  Sex: Female

DRUGS (2)
  1. GLEEVEC [Suspect]
     Indication: GASTROINTESTINAL STROMAL TUMOUR
     Dosage: 400 MG/D
     Dates: start: 20021201, end: 20030101
  2. GLEEVEC [Suspect]
     Dosage: UNK
     Route: 048
     Dates: end: 20040101

REACTIONS (3)
  - LEUKOPENIA [None]
  - MALIGNANT NEOPLASM PROGRESSION [None]
  - SURGERY [None]
